FAERS Safety Report 7715609-7 (Version None)
Quarter: 2011Q3

REPORT INFORMATION
  Report Type: 
  Country: None (occurrence: None)
  Receive Date: 20110810
  Receipt Date: 20110517
  Transmission Date: 20111222
  Serious: No
  Sender: FDA-Public Use
  Company Number: 1000020990

PATIENT
  Age: 47 Year
  Sex: Female

DRUGS (11)
  1. SYMBICORT (BUDESONIDE, FORMOTEROL FUMARATE) (BUDESONIDE, FORMOTEROL FU [Concomitant]
  2. SAVELLA [Suspect]
     Dosage: SEE IMAGE
     Route: 048
     Dates: start: 20090801, end: 20090801
  3. SAVELLA [Suspect]
     Dosage: SEE IMAGE
     Route: 048
     Dates: start: 20090101, end: 20090101
  4. SAVELLA [Suspect]
     Dosage: SEE IMAGE
     Route: 048
     Dates: start: 20090101
  5. ESTRADIOL [Concomitant]
  6. OMNARIS (ICLESONIDE) (CICLESONIDE) [Concomitant]
  7. SAVELLA [Suspect]
     Indication: FIBROMYALGIA
     Dosage: 100 MG (50 MG, 2 IN 1 D), ORAL, 200 MG (100 MG, 2 IN 1 D) ,ORAL,  100 MG (50 MG, 2 IN 1 D), ORAL
     Route: 048
     Dates: start: 20101101, end: 20110513
  8. SAVELLA [Suspect]
     Indication: FIBROMYALGIA
     Dosage: 100 MG (50 MG, 2 IN 1 D), ORAL, 200 MG (100 MG, 2 IN 1 D) ,ORAL,  100 MG (50 MG, 2 IN 1 D), ORAL
     Route: 048
     Dates: start: 20110517
  9. SAVELLA [Suspect]
     Indication: FIBROMYALGIA
     Dosage: 100 MG (50 MG, 2 IN 1 D), ORAL, 200 MG (100 MG, 2 IN 1 D) ,ORAL,  100 MG (50 MG, 2 IN 1 D), ORAL
     Route: 048
     Dates: start: 20110514, end: 20110516
  10. VALTREX (VALACICLOVIR HYDROCHLORIDE) (CALACICLOVIR HYDROCHLORIDE) [Concomitant]
  11. SAVELLA [Suspect]
     Indication: FIBROMYALGIA
     Dosage: 200 MG (100 MG, 2 IN 1 D), ORAL
     Route: 048
     Dates: end: 20101101

REACTIONS (6)
  - HYPERHIDROSIS [None]
  - BLOOD PRESSURE INCREASED [None]
  - CONTUSION [None]
  - HEART RATE INCREASED [None]
  - HEADACHE [None]
  - PALPITATIONS [None]
